FAERS Safety Report 8599408-2 (Version None)
Quarter: 2012Q3

REPORT INFORMATION
  Report Type: 
  Country: None (occurrence: None)
  Receive Date: 20120816
  Receipt Date: 20120809
  Transmission Date: 20120928
  Serious: No
  Sender: FDA-Public Use
  Company Number: US-ASTRAZENECA-2012SE56824

PATIENT
  Age: 55 Year
  Sex: Female

DRUGS (8)
  1. LANTUS [Concomitant]
  2. ASPIRIN [Concomitant]
  3. LISINOPRIL [Suspect]
     Route: 048
  4. BENICAR [Concomitant]
  5. GLUCOPHAGE [Concomitant]
  6. CRESTOR [Concomitant]
     Route: 048
  7. NOVOLOG [Concomitant]
  8. MELOXICAM [Concomitant]

REACTIONS (2)
  - COUGH [None]
  - DRUG HYPERSENSITIVITY [None]
